FAERS Safety Report 6315341-0 (Version None)
Quarter: 2009Q3

REPORT INFORMATION
  Report Type: 
  Country: None (occurrence: None)
  Receive Date: 20090819
  Receipt Date: 20090811
  Transmission Date: 20100115
  Serious: Yes (Other)
  Sender: FDA-Public Use
  Company Number: JP-PFIZER INC-2009255746

PATIENT

DRUGS (1)
  1. CABERGOLINE [Suspect]
     Indication: BLOOD PROLACTIN INCREASED
     Dosage: FREQUENCY: EVERY WEEK;
     Route: 048

REACTIONS (1)
  - ABORTION [None]
